FAERS Safety Report 23118814 (Version 5)
Quarter: 2024Q2

REPORT INFORMATION
  Report Type: Report from Study
  Country: US (occurrence: US)
  Receive Date: 20231028
  Receipt Date: 20240517
  Transmission Date: 20240716
  Serious: Yes (Hospitalization, Other)
  Sender: FDA-Public Use
  Company Number: US-ABBVIE-5465834

PATIENT
  Age: 73 Year
  Sex: Male
  Weight: 69.399 kg

DRUGS (15)
  1. HUMIRA [Suspect]
     Active Substance: ADALIMUMAB
     Indication: Crohn^s disease
     Dosage: FORM STRENGTH: 40 MILLIGRAM
     Route: 058
     Dates: start: 202307
  2. HUMIRA [Suspect]
     Active Substance: ADALIMUMAB
     Route: 058
     Dates: start: 202402
  3. HUMIRA [Suspect]
     Active Substance: ADALIMUMAB
     Dosage: FORM STRENGTH: 40 MILLIGRAM
     Route: 058
     Dates: start: 20230524
  4. HUMIRA [Suspect]
     Active Substance: ADALIMUMAB
     Dosage: FORM STRENGTH: 40 MILLIGRAM
     Route: 058
  5. FOLIC ACID [Concomitant]
     Active Substance: FOLIC ACID
     Indication: Vitamin supplementation
  6. TAMSULOSIN [Concomitant]
     Active Substance: TAMSULOSIN
     Indication: Dysuria
  7. BENADRYL [Concomitant]
     Active Substance: DIPHENHYDRAMINE HYDROCHLORIDE
     Indication: Pruritus
     Dosage: AT NIGHT
  8. TUMS [Concomitant]
     Active Substance: CALCIUM CARBONATE
     Indication: Mineral supplementation
  9. VITAMIN D3 [Concomitant]
     Active Substance: CHOLECALCIFEROL
     Indication: Product used for unknown indication
  10. MIRALAX [Concomitant]
     Active Substance: POLYETHYLENE GLYCOL 3350
     Indication: Faeces hard
  11. METHOTREXATE [Suspect]
     Active Substance: METHOTREXATE
     Indication: Crohn^s disease
     Dosage: FORM STRENGTH: 2.5 MG, FOUR PILLS ONCE A WEEK
     Route: 048
     Dates: start: 20231106
  12. METHOTREXATE [Suspect]
     Active Substance: METHOTREXATE
     Indication: Crohn^s disease
     Dosage: FORM STRENGTH: 2.5 MG, FIVE PILLS ONCE A WEEK
     Route: 048
     Dates: start: 202306, end: 202310
  13. FINASTERIDE [Concomitant]
     Active Substance: FINASTERIDE
     Indication: Dysuria
  14. MIRTAZAPINE [Concomitant]
     Active Substance: MIRTAZAPINE
     Indication: Affective disorder
  15. CLARITIN [Concomitant]
     Active Substance: LORATADINE
     Indication: Pruritus
     Dosage: IN THE MORNING

REACTIONS (26)
  - Abdominal distension [Recovering/Resolving]
  - Asthenia [Recovering/Resolving]
  - White blood cell count increased [Unknown]
  - Haematochezia [Unknown]
  - Blood urea increased [Not Recovered/Not Resolved]
  - Electrolyte imbalance [Recovering/Resolving]
  - Alanine aminotransferase increased [Not Recovered/Not Resolved]
  - Fistula discharge [Recovered/Resolved]
  - Feeding disorder [Recovering/Resolving]
  - Functional gastrointestinal disorder [Recovering/Resolving]
  - Blood sodium decreased [Not Recovered/Not Resolved]
  - Nausea [Recovered/Resolved]
  - Glomerular filtration rate decreased [Not Recovered/Not Resolved]
  - Intestinal pseudo-obstruction [Recovered/Resolved]
  - Defaecation disorder [Recovered/Resolved]
  - Flatulence [Recovering/Resolving]
  - Vomiting [Recovering/Resolving]
  - Aspartate aminotransferase increased [Not Recovered/Not Resolved]
  - Blood creatinine increased [Not Recovered/Not Resolved]
  - Pain [Recovering/Resolving]
  - Hernia [Unknown]
  - Inflammation [Unknown]
  - Erythema [Unknown]
  - Cellulitis [Recovered/Resolved]
  - Abscess [Unknown]
  - Infected fistula [Unknown]

NARRATIVE: CASE EVENT DATE: 20230803
